FAERS Safety Report 10620454 (Version 4)
Quarter: 2015Q1

REPORT INFORMATION
  Report Type: Report from Study
  Country: US (occurrence: US)
  Receive Date: 20141202
  Receipt Date: 20150119
  Transmission Date: 20150720
  Serious: Yes (Other)
  Sender: FDA-Public Use
  Company Number: US-SA-2014SA148879

PATIENT
  Age: 62 Year
  Sex: Female

DRUGS (1)
  1. AUBAGIO [Suspect]
     Active Substance: TERIFLUNOMIDE
     Indication: MULTIPLE SCLEROSIS
     Route: 048
     Dates: start: 20140907

REACTIONS (7)
  - Burning sensation [Unknown]
  - Alopecia [Unknown]
  - Neuralgia [Unknown]
  - Nausea [Unknown]
  - Hypoaesthesia [Unknown]
  - Malaise [Recovering/Resolving]
  - Neurogenic bladder [Unknown]
